FAERS Safety Report 6252793-9 (Version None)
Quarter: 2009Q3

REPORT INFORMATION
  Report Type: 
  Country: None (occurrence: None)
  Receive Date: 20090701
  Receipt Date: 20090620
  Transmission Date: 20100115
  Serious: Yes (Other)
  Sender: FDA-Public Use
  Company Number: US-AMGEN-US353319

PATIENT
  Age: 59 Year
  Sex: Male

DRUGS (2)
  1. ENBREL [Suspect]
     Indication: PSORIASIS
     Route: 058
     Dates: start: 20040801
  2. ENBREL [Suspect]
     Indication: PSORIATIC ARTHROPATHY

REACTIONS (7)
  - BASAL CELL CARCINOMA [None]
  - BOWEN'S DISEASE [None]
  - CONVULSION [None]
  - DEMENTIA [None]
  - INJECTION SITE REACTION [None]
  - MYOCLONUS [None]
  - STAPHYLOCOCCAL INFECTION [None]
